FAERS Safety Report 7712311-2 (Version None)
Quarter: 2011Q3

REPORT INFORMATION
  Report Type: 
  Country: None (occurrence: None)
  Receive Date: 20110826
  Receipt Date: 20110822
  Transmission Date: 20111222
  Serious: Yes (Hospitalization)
  Sender: FDA-Public Use
  Company Number: CZ-PFIZER INC-2011156048

PATIENT
  Age: 68 Year
  Sex: Female

DRUGS (2)
  1. METHYLPREDNISOLONE SODIUM SUCCINATE [Suspect]
     Indication: MULTIPLE SCLEROSIS
     Dosage: DOSAGE FORM
     Route: 042
  2. BLINDED THERAPY [Suspect]
     Indication: EMBOLISM
     Dosage: 1 DOSAGE FORM 1 DAY
     Route: 048
     Dates: start: 20090915

REACTIONS (2)
  - MULTIPLE SCLEROSIS [None]
  - DIABETES MELLITUS [None]
